FAERS Safety Report 12191129 (Version 1)
Quarter: 2016Q1

REPORT INFORMATION
  Report Type: Spontaneous
  Country: US (occurrence: None)
  Receive Date: 20160317
  Receipt Date: 20160317
  Transmission Date: 20160526
  Serious: No
  Sender: FDA-Public Use
  Company Number: None

PATIENT
  Age: 59 Year
  Sex: Male
  Weight: 63.5 kg

DRUGS (2)
  1. HARVONI [Suspect]
     Active Substance: LEDIPASVIR\SOFOSBUVIR
     Indication: HEPATIC CIRRHOSIS
     Dosage: 90/400 DAILY PO
     Route: 048
     Dates: start: 20160203
  2. HARVONI [Suspect]
     Active Substance: LEDIPASVIR\SOFOSBUVIR
     Indication: HEPATITIS C
     Dosage: 90/400 DAILY PO
     Route: 048
     Dates: start: 20160203

REACTIONS (5)
  - Muscular weakness [None]
  - Pain in extremity [None]
  - Fatigue [None]
  - Depression [None]
  - Urinary tract infection [None]

NARRATIVE: CASE EVENT DATE: 20160316
